FAERS Safety Report 5844297-X (Version None)
Quarter: 2008Q3

REPORT INFORMATION
  Report Type: 
  Country: None (occurrence: None)
  Receive Date: 20080731
  Receipt Date: 20080426
  Transmission Date: 20090109
  Serious: No
  Sender: FDA-Public Use
  Company Number: US200804006904

PATIENT
  Age: 54 Year
  Sex: Female

DRUGS (5)
  1. BYETTA [Suspect]
     Indication: TYPE 2 DIABETES MELLITUS
     Dosage: 5 UG, 2/D, SUBCUTANEOUS
     Route: 058
     Dates: start: 20080401, end: 20080401
  2. MAXIDE (HYDROCHLOROTHIAZIDE, TRIAMTERENE) [Concomitant]
  3. DIOVAN (HYDROCHLOROTHIAZIDE, VALSARTAN) [Concomitant]
  4. METOPROLOL TARTRATE [Concomitant]
  5. GLIPIZIDE [Concomitant]

REACTIONS (3)
  - ACTIVITIES OF DAILY LIVING IMPAIRED [None]
  - ANXIETY [None]
  - HEART RATE DECREASED [None]
